FAERS Safety Report 9034451 (Version 1)
Quarter: 2013Q1

REPORT INFORMATION
  Report Type: Spontaneous
  Country: IN (occurrence: None)
  Receive Date: 20130114
  Receipt Date: 20130114
  Transmission Date: 20140127
  Serious: No
  Sender: FDA-Public Use
  Company Number: B0856760A

PATIENT
  Age: 12 Year
  Sex: Male

DRUGS (2)
  1. LAMOTRIGINE (FORMULATION UNKNOWN) (GENERIC) (LAMOTRIGINE) [Suspect]
     Indication: PARTIAL SEIZURES
     Dates: start: 200909
  2. VALPROATE SODIUM [Concomitant]

REACTIONS (4)
  - Vanishing bile duct syndrome [None]
  - Rash macular [None]
  - Skin hyperpigmentation [None]
  - Cholestasis [None]
